FAERS Safety Report 9992253 (Version 1)
Quarter: 2014Q1

REPORT INFORMATION
  Report Type: Spontaneous
  Country: US (occurrence: US)
  Receive Date: 20140310
  Receipt Date: 20140310
  Transmission Date: 20141002
  Serious: Yes (Other)
  Sender: FDA-Public Use
  Company Number: US-BAYER-2014-031145

PATIENT
  Age: 58 Year
  Sex: Male
  Weight: 79 kg

DRUGS (3)
  1. ALKA-SELTZER PLUS MAX COUGH, MUCUS + CONGESTION LIQUID GELS [Suspect]
     Indication: NASOPHARYNGITIS
     Dosage: 2 DF, PRN
     Route: 048
     Dates: start: 201312, end: 20140225
  2. ATENOLOL [Concomitant]
  3. DEXILANT [Concomitant]

REACTIONS (8)
  - Depression suicidal [Recovered/Resolved]
  - Antisocial behaviour [Recovered/Resolved]
  - Suicidal ideation [Recovered/Resolved]
  - Depression [Not Recovered/Not Resolved]
  - Antisocial behaviour [Not Recovered/Not Resolved]
  - Aggression [Not Recovered/Not Resolved]
  - Anhedonia [Not Recovered/Not Resolved]
  - Aggression [Not Recovered/Not Resolved]
